FAERS Safety Report 7408691-8 (Version None)
Quarter: 2011Q2

REPORT INFORMATION
  Report Type: 
  Country: None (occurrence: None)
  Receive Date: 20110404
  Receipt Date: 20110318
  Transmission Date: 20111010
  Serious: Yes (Other)
  Sender: FDA-Public Use
  Company Number: 029558

PATIENT
  Sex: Female
  Weight: 84.4 kg

DRUGS (7)
  1. PREDNISONE [Concomitant]
  2. NORVASC [Concomitant]
  3. XYZAL [Suspect]
     Indication: ANTIALLERGIC THERAPY
     Dosage: (5 MG ORAL)
     Route: 048
     Dates: start: 20100419, end: 20110101
  4. REMICADE [Suspect]
     Indication: COLITIS ULCERATIVE
     Dosage: (LYOPHILIZED POWDER)
     Dates: start: 20101126
  5. SPIRIVA [Concomitant]
  6. SERETIDE /01434201/ [Concomitant]
  7. ALBUTEROL [Concomitant]

REACTIONS (6)
  - FATIGUE [None]
  - DYSPHONIA [None]
  - CONDITION AGGRAVATED [None]
  - LARYNGITIS [None]
  - BRONCHITIS [None]
  - COLITIS ULCERATIVE [None]
